FAERS Safety Report 4391566-9 (Version None)
Quarter: 2004Q3

REPORT INFORMATION
  Report Type: 
  Country: None (occurrence: None)
  Receive Date: 20040702
  Receipt Date: 20040422
  Transmission Date: 20050211
  Serious: Yes (Other)
  Sender: FDA-Public Use
  Company Number: 2004UW08220

PATIENT
  Age: 63 Year
  Sex: Female

DRUGS (6)
  1. CRESTOR [Suspect]
     Dosage: 10 MG
     Route: 048
  2. GLUCOSAMINE [Concomitant]
  3. VITAMIN B-12 [Concomitant]
  4. VITAMIN B6 [Concomitant]
  5. FOLIC ACID [Concomitant]
  6. BENICAR [Concomitant]

REACTIONS (1)
  - BURNING SENSATION [None]
